FAERS Safety Report 6230794-4 (Version None)
Quarter: 2009Q2

REPORT INFORMATION
  Report Type: 
  Country: None (occurrence: None)
  Receive Date: 20090616
  Receipt Date: 20090521
  Transmission Date: 20091009
  Serious: Yes (Life-Threatening, Other)
  Sender: FDA-Public Use
  Company Number: AU-BAYER-200915773GPV

PATIENT
  Age: 88 Year
  Sex: Female

DRUGS (2)
  1. REFLUDAN [Suspect]
     Indication: THROMBOCYTOPENIA
     Dosage: AS USED: 4 MG
     Route: 042
     Dates: start: 20080320
  2. REFLUDAN [Suspect]
     Dosage: AS USED: 3 ML
     Route: 042
     Dates: start: 20080324, end: 20090324

REACTIONS (4)
  - CHEST DISCOMFORT [None]
  - DYSPNOEA [None]
  - HYPOTENSION [None]
  - LOSS OF CONSCIOUSNESS [None]
